FAERS Safety Report 10477473 (Version 1)
Quarter: 2014Q3

REPORT INFORMATION
  Report Type: Spontaneous
  Country: PL (occurrence: None)
  Receive Date: 20140923
  Receipt Date: 20140923
  Transmission Date: 20150326
  Serious: Yes (Other)
  Sender: FDA-Public Use
  Company Number: 2014-PEL-000298

PATIENT
  Age: 16 Year
  Sex: Female
  Weight: 46 kg

DRUGS (8)
  1. ATRACURIUM(ATRACURIUM) [Concomitant]
  2. FENTANYL(FENTANYL) [Concomitant]
     Active Substance: FENTANYL CITRATE
  3. SOJOURN [Suspect]
     Active Substance: SEVOFLURANE
     Indication: MAINTENANCE OF ANAESTHESIA
     Dosage: 2 VOL %
  4. PROPOFOL(PROPOFOL) [Concomitant]
  5. OXYGEN(OXYGEN) [Concomitant]
  6. ATROPINE(ATROPINE) [Concomitant]
  7. MIDAZOLAM(MIDAZOLAM) [Concomitant]
  8. RINGER/01179901/(CALCIUM CHLORIDE DIHYDRATE, POTASSIUM CHLORIDE, SODIUM CHLORIDE) [Concomitant]

REACTIONS (1)
  - Hypovolaemic shock [None]
